APPROVED DRUG PRODUCT: SERTRALINE HYDROCHLORIDE
Active Ingredient: SERTRALINE HYDROCHLORIDE
Strength: EQ 150MG BASE
Dosage Form/Route: CAPSULE;ORAL
Application: N215133 | Product #001 | TE Code: AB
Applicant: ALMATICA PHARMA LLC
Approved: Oct 4, 2021 | RLD: Yes | RS: Yes | Type: RX